FAERS Safety Report 12850067 (Version 1)
Quarter: 2016Q4

REPORT INFORMATION
  Report Type: Spontaneous
  Country: US (occurrence: US)
  Receive Date: 20161014
  Receipt Date: 20161014
  Transmission Date: 20170207
  Serious: Yes (Other)
  Sender: FDA-Public Use
  Company Number: US-ROCHE-1743061

PATIENT
  Age: 65 Year
  Sex: Male
  Weight: 49.94 kg

DRUGS (1)
  1. ESBRIET [Suspect]
     Active Substance: PIRFENIDONE
     Indication: IDIOPATHIC PULMONARY FIBROSIS
     Route: 048
     Dates: start: 20160122, end: 20160330

REACTIONS (1)
  - Weight decreased [Unknown]

NARRATIVE: CASE EVENT DATE: 20160330
